FAERS Safety Report 4414330-0 (Version None)
Quarter: 2004Q3

REPORT INFORMATION
  Report Type: 
  Country: None (occurrence: None)
  Receive Date: 20040729
  Receipt Date: 20040715
  Transmission Date: 20050211
  Serious: Yes (Other)
  Sender: FDA-Public Use
  Company Number: 2004223967US

PATIENT
  Sex: Female

DRUGS (4)
  1. PROVERA [Suspect]
  2. PREMARIN [Suspect]
  3. PREMPRO [Suspect]
  4. CLIMARA [Suspect]

REACTIONS (1)
  - BREAST CANCER FEMALE [None]
